FAERS Safety Report 14141873 (Version 1)
Quarter: 2017Q4

REPORT INFORMATION
  Report Type: Spontaneous
  Country: US (occurrence: US)
  Receive Date: 20171030
  Receipt Date: 20171030
  Transmission Date: 20180321
  Serious: No
  Sender: FDA-Public Use
  Company Number: US-PFIZER INC-2017463011

PATIENT
  Age: 48 Year
  Sex: Female

DRUGS (14)
  1. RELAFEN [Suspect]
     Active Substance: NABUMETONE
  2. ERYTHROMYCIN. [Suspect]
     Active Substance: ERYTHROMYCIN
  3. MIDRIN [Suspect]
     Active Substance: ACETAMINOPHEN\DICHLORALPHENAZONE\ISOMETHEPTENE
  4. TORADOL [Suspect]
     Active Substance: KETOROLAC TROMETHAMINE
  5. AMERGE [Suspect]
     Active Substance: NARATRIPTAN HYDROCHLORIDE
  6. IMITREX [Suspect]
     Active Substance: SUMATRIPTAN SUCCINATE
  7. VIOXX [Suspect]
     Active Substance: ROFECOXIB
  8. SKELAXIN [Suspect]
     Active Substance: METAXALONE
  9. FLEXERIL [Suspect]
     Active Substance: CYCLOBENZAPRINE HYDROCHLORIDE
  10. INAPSINE [Suspect]
     Active Substance: DROPERIDOL
  11. CELEBREX [Suspect]
     Active Substance: CELECOXIB
  12. ULTRAM [Suspect]
     Active Substance: TRAMADOL HYDROCHLORIDE
  13. BACLOFEN. [Suspect]
     Active Substance: BACLOFEN
  14. NAPROSYN [Suspect]
     Active Substance: NAPROXEN

REACTIONS (1)
  - Drug hypersensitivity [Unknown]
